FAERS Safety Report 7452172 (Version 3)
Quarter: 2012Q4

REPORT INFORMATION
  Report Type: Report from Study
  Country: US (occurrence: US)
  Receive Date: 20100702
  Receipt Date: 20121217
  Transmission Date: 20130627
  Serious: Yes (Hospitalization)
  Sender: FDA-Public Use
  Company Number: US-JNJFOC-20100608239

PATIENT
  Age: 8 Year
  Sex: Female
  Weight: 32.2 kg

DRUGS (6)
  1. INFLIXIMAB [Suspect]
     Indication: INFLAMMATORY BOWEL DISEASE
     Route: 042
     Dates: start: 20070911, end: 20100323
  2. HUMIRA [Concomitant]
     Dates: start: 20100416
  3. PREDNISONE [Concomitant]
  4. ANTIBIOTICS [Concomitant]
     Indication: INFLAMMATORY BOWEL DISEASE
  5. METHOTREXATE [Concomitant]
  6. PROBIOTICS [Concomitant]

REACTIONS (2)
  - Anal fistula [Recovered/Resolved]
  - Perirectal abscess [Recovered/Resolved]
